FAERS Safety Report 11269998 (Version 1)
Quarter: 2015Q3

REPORT INFORMATION
  Report Type: Spontaneous
  Country: US (occurrence: US)
  Receive Date: 20150714
  Receipt Date: 20150714
  Transmission Date: 20151125
  Serious: Yes (Hospitalization, Other)
  Sender: FDA-Public Use
  Company Number: US-GLAXOSMITHKLINE-US2014GSK054521

PATIENT
  Age: 80 Year
  Sex: Female

DRUGS (7)
  1. WARFARIN [Suspect]
     Active Substance: WARFARIN
     Indication: PRODUCT USED FOR UNKNOWN INDICATION
     Dosage: UNK, U
     Route: 065
  2. VOTRIENT [Suspect]
     Active Substance: PAZOPANIB HYDROCHLORIDE
     Dosage: 600 MG, U
  3. VOTRIENT [Suspect]
     Active Substance: PAZOPANIB HYDROCHLORIDE
     Dosage: 200 UNK, UNK
     Dates: start: 20141008
  4. VOTRIENT [Suspect]
     Active Substance: PAZOPANIB HYDROCHLORIDE
     Dosage: UNK, U
     Route: 065
  5. VOTRIENT [Suspect]
     Active Substance: PAZOPANIB HYDROCHLORIDE
     Indication: RENAL CANCER
     Dosage: 200 MG, U
     Route: 065
     Dates: start: 20141007
  6. VOTRIENT [Suspect]
     Active Substance: PAZOPANIB HYDROCHLORIDE
     Dosage: UNK
     Dates: start: 20141007
  7. VOTRIENT [Suspect]
     Active Substance: PAZOPANIB HYDROCHLORIDE
     Dosage: 400 MG, QD
     Dates: start: 20150303

REACTIONS (13)
  - Transient ischaemic attack [Unknown]
  - Vomiting [Unknown]
  - Hypoaesthesia oral [Unknown]
  - Diarrhoea [Not Recovered/Not Resolved]
  - Dyspnoea [Recovered/Resolved]
  - International normalised ratio fluctuation [Unknown]
  - Hepatic enzyme increased [Unknown]
  - Hypoaesthesia [Unknown]
  - Headache [Unknown]
  - Nausea [Not Recovered/Not Resolved]
  - Internal haemorrhage [Unknown]
  - Hypertension [Unknown]
  - Prothrombin time abnormal [Unknown]

NARRATIVE: CASE EVENT DATE: 201410
